FAERS Safety Report 9603697 (Version 1)
Quarter: 2013Q4

REPORT INFORMATION
  Report Type: Report from Study
  Country: US (occurrence: US)
  Receive Date: 20131007
  Receipt Date: 20131007
  Transmission Date: 20140711
  Serious: Yes (Other)
  Sender: FDA-Public Use
  Company Number: US-ABBVIE-13P-163-1152726-00

PATIENT
  Age: 64 Year
  Sex: Female
  Weight: 102.15 kg

DRUGS (7)
  1. HUMIRA [Suspect]
     Indication: RHEUMATOID ARTHRITIS
  2. SYNTHROID [Concomitant]
     Indication: HYPOTHYROIDISM
  3. NEXIUM [Concomitant]
     Indication: ULCER
  4. LASIX [Concomitant]
     Indication: OEDEMA PERIPHERAL
  5. LASIX [Concomitant]
     Indication: JOINT SWELLING
  6. MOBIC [Concomitant]
     Indication: RHEUMATOID ARTHRITIS
  7. TRAMADOL [Concomitant]
     Indication: ARTHRALGIA

REACTIONS (6)
  - Joint destruction [Recovered/Resolved]
  - Joint destruction [Recovered/Resolved]
  - Pulmonary arterial hypertension [Not Recovered/Not Resolved]
  - Arterial disorder [Unknown]
  - Arthralgia [Not Recovered/Not Resolved]
  - Dyspnoea [Not Recovered/Not Resolved]
